FAERS Safety Report 10080540 (Version 1)
Quarter: 2014Q2

REPORT INFORMATION
  Report Type: Spontaneous
  Country: GB (occurrence: GB)
  Receive Date: 20140416
  Receipt Date: 20140416
  Transmission Date: 20141212
  Serious: Yes (Other)
  Sender: FDA-Public Use
  Company Number: GB-ACCORD-023030

PATIENT
  Age: 80 Year
  Sex: Female

DRUGS (7)
  1. TRAMADOL/TRAMADOL HYDROCHLORIDE [Suspect]
     Indication: SKIN ULCER
  2. ACECLOFENAC [Suspect]
     Indication: PRODUCT USED FOR UNKNOWN INDICATION
  3. MACRODANTIN [Suspect]
     Indication: INFECTION
     Dosage: PL 12762/0048 MACRODANTIN CAPSULES 50MG?MERCURY PHARMACEUTICALS LIMITED.
     Route: 048
     Dates: start: 20140306, end: 20140309
  4. ZINC OXIDE [Suspect]
     Indication: PRODUCT USED FOR UNKNOWN INDICATION
     Dosage: ZINC COMPLEX
  5. WARFARIN [Suspect]
     Indication: PRODUCT USED FOR UNKNOWN INDICATION
  6. OXYCONTIN [Suspect]
     Indication: PRODUCT USED FOR UNKNOWN INDICATION
     Dosage: OXYCONTIN 20 MG/40 MG
  7. IRON [Suspect]
     Indication: ANAEMIA

REACTIONS (2)
  - Macular degeneration [Not Recovered/Not Resolved]
  - Vision blurred [Not Recovered/Not Resolved]
